FAERS Safety Report 7057881-5 (Version None)
Quarter: 2010Q4

REPORT INFORMATION
  Report Type: 
  Country: None (occurrence: None)
  Receive Date: 20101022
  Receipt Date: 20101011
  Transmission Date: 20110411
  Serious: Yes (Other)
  Sender: FDA-Public Use
  Company Number: US-BAYER-201021596NA

PATIENT
  Age: 46 Year
  Sex: Female
  Weight: 76 kg

DRUGS (3)
  1. MIRENA [Suspect]
     Indication: MENORRHAGIA
     Route: 015
     Dates: start: 20090309
  2. MAXALT [Concomitant]
     Indication: MIGRAINE
  3. ALLEGRA [Concomitant]
     Indication: MULTIPLE ALLERGIES

REACTIONS (1)
  - DEVICE DISLOCATION [None]
